FAERS Safety Report 5756811-3 (Version None)
Quarter: 2008Q2

REPORT INFORMATION
  Report Type: 
  Country: None (occurrence: None)
  Receive Date: 20080529
  Receipt Date: 20080513
  Transmission Date: 20081010
  Serious: Yes (Hospitalization)
  Sender: FDA-Public Use
  Company Number: 2008AL004814

PATIENT
  Age: 69 Year
  Sex: Male
  Weight: 61 kg

DRUGS (5)
  1. DIGOXIN [Suspect]
  2. DIGOXIN [Concomitant]
  3. FUROSEMIDE [Concomitant]
  4. PROCHLORPERAZINE [Concomitant]
  5. THEOPHYLLINE [Concomitant]

REACTIONS (9)
  - ANOREXIA [None]
  - BALANCE DISORDER [None]
  - CONVULSION [None]
  - DEEP VEIN THROMBOSIS [None]
  - HEMIPARESIS [None]
  - HYPOXIA [None]
  - MUSCULAR WEAKNESS [None]
  - NAUSEA [None]
  - VOMITING [None]
